FAERS Safety Report 9441745 (Version 1)
Quarter: 2013Q3

REPORT INFORMATION
  Report Type: Report from Study
  Country: US (occurrence: US)
  Receive Date: 20130806
  Receipt Date: 20130806
  Transmission Date: 20140515
  Serious: Yes (Hospitalization)
  Sender: FDA-Public Use
  Company Number: US-ROCHE-1254666

PATIENT
  Age: 49 Year
  Sex: Male

DRUGS (15)
  1. XOLAIR [Suspect]
     Indication: ASTHMA
     Dosage: 300 MG SQ Q 4 WEEKS
     Route: 058
  2. NAPROSYN [Suspect]
     Indication: PRODUCT USED FOR UNKNOWN INDICATION
     Dosage: 500 TWICE A DAY
     Route: 065
  3. GEMFIBROZIL [Concomitant]
     Route: 065
  4. ADVAIR HFA [Concomitant]
     Dosage: UNKNOWN
     Route: 065
  5. FLONASE [Concomitant]
  6. CLARITIN [Concomitant]
     Route: 065
  7. QVAR [Concomitant]
     Route: 065
  8. LOSARTAN [Concomitant]
     Route: 065
  9. ZOLPIDEM [Concomitant]
     Dosage: 10 PRN
     Route: 065
  10. ALLOPURINOL [Concomitant]
     Dosage: 100 AS PER NEEDED
     Route: 065
  11. FLUOXETINE [Concomitant]
     Dosage: 20 QD
     Route: 065
  12. LIPITOR [Concomitant]
     Dosage: 20 EVERY DAY
     Route: 065
  13. GUAIFENESIN [Concomitant]
     Route: 065
  14. DALIRESP [Concomitant]
     Dosage: 500 EVERY DAY
     Route: 065
     Dates: start: 20120404
  15. PREDNISONE [Concomitant]
     Route: 065

REACTIONS (21)
  - Pain in extremity [Unknown]
  - Epistaxis [Unknown]
  - Cough [Unknown]
  - Dyspnoea [Unknown]
  - Sputum discoloured [Unknown]
  - Blood glucose increased [Unknown]
  - Blood triglycerides increased [Unknown]
  - Pallor [Unknown]
  - Breath sounds abnormal [Unknown]
  - Rhonchi [Unknown]
  - Chronic obstructive pulmonary disease [Unknown]
  - Oedema [Unknown]
  - Lipids increased [Unknown]
  - Blood pressure increased [Unknown]
  - Gouty arthritis [Unknown]
  - Lung neoplasm [Unknown]
  - Gout [Unknown]
  - Swelling [Unknown]
  - Lung infiltration [Unknown]
  - Breath sounds [Unknown]
  - Nasal congestion [Unknown]
